FAERS Safety Report 7464044-8 (Version None)
Quarter: 2011Q2

REPORT INFORMATION
  Report Type: 
  Country: None (occurrence: None)
  Receive Date: 20110506
  Receipt Date: 20110114
  Transmission Date: 20111010
  Serious: No
  Sender: FDA-Public Use
  Company Number: US-BAYER-2011-005807

PATIENT
  Sex: Female
  Weight: 54.422 kg

DRUGS (1)
  1. AVELOX [Suspect]
     Indication: UNEVALUABLE EVENT
     Dosage: UNK, QD
     Route: 048

REACTIONS (2)
  - DIZZINESS [None]
  - PRURITUS [None]
